FAERS Safety Report 6861084-4 (Version None)
Quarter: 2010Q3

REPORT INFORMATION
  Report Type: 
  Country: None (occurrence: None)
  Receive Date: 20100720
  Receipt Date: 20100715
  Transmission Date: 20110219
  Serious: Yes (Death)
  Sender: FDA-Public Use
  Company Number: US-CELGENEUS-163-21880-10052149

PATIENT
  Sex: Male

DRUGS (1)
  1. REVLIMID [Suspect]
     Indication: MALIGNANT NEOPLASM PROGRESSION
     Route: 048
     Dates: start: 20100514, end: 20100501

REACTIONS (1)
  - MALIGNANT NEOPLASM PROGRESSION [None]
